FAERS Safety Report 16664010 (Version 1)
Quarter: 2019Q3

REPORT INFORMATION
  Report Type: Report from Study
  Country: TW (occurrence: TW)
  Receive Date: 20190802
  Receipt Date: 20190802
  Transmission Date: 20191004
  Serious: Yes (Death, Other)
  Sender: FDA-Public Use
  Company Number: TW-GLAXOSMITHKLINE-TW2019APC135916

PATIENT

DRUGS (2)
  1. MEPOLIZUMAB [Suspect]
     Active Substance: MEPOLIZUMAB
     Indication: ASTHMA
     Dosage: 100 MG, UNK
     Dates: start: 201901
  2. CO-DIOVAN [Concomitant]
     Active Substance: HYDROCHLOROTHIAZIDE\VALSARTAN
     Indication: PRODUCT USED FOR UNKNOWN INDICATION
     Dosage: 80 MG+12.5 MG

REACTIONS (6)
  - Cardiac disorder [Fatal]
  - Tachycardia [Unknown]
  - Acute myocardial infarction [Fatal]
  - Loss of consciousness [Unknown]
  - Pyrexia [Unknown]
  - Soliloquy [Unknown]
